FAERS Safety Report 9989630 (Version 1)
Quarter: 2014Q1

REPORT INFORMATION
  Report Type: Spontaneous
  Country: US (occurrence: US)
  Receive Date: 20140310
  Receipt Date: 20140310
  Transmission Date: 20141002
  Serious: No
  Sender: FDA-Public Use
  Company Number: US-ABBVIE-13P-163-1132544-00

PATIENT
  Age: 65 Year
  Sex: Male
  Weight: 93.07 kg

DRUGS (9)
  1. HUMIRA [Suspect]
     Indication: CROHN^S DISEASE
     Dates: start: 2011, end: 201302
  2. HUMIRA [Suspect]
     Dates: start: 201302
  3. WELCHOL [Concomitant]
     Indication: BLOOD CHOLESTEROL INCREASED
  4. METOPROLOL [Concomitant]
     Indication: HYPERTENSION
  5. AMILODIPINE [Concomitant]
     Indication: HYPERTENSION
  6. URSODIOL [Concomitant]
     Indication: HEPATIC ENZYME INCREASED
  7. ASPIRIN [Concomitant]
     Indication: CARDIOVASCULAR DISORDER
  8. TYLENOL #4 [Concomitant]
     Indication: ARTHRITIS
  9. LEVOTHYROXINE [Concomitant]
     Indication: HYPOTHYROIDISM

REACTIONS (1)
  - Drug ineffective [Not Recovered/Not Resolved]
